FAERS Safety Report 17295317 (Version 1)
Quarter: 2020Q1

REPORT INFORMATION
  Report Type: Spontaneous
  Country: FR (occurrence: FR)
  Receive Date: 20200121
  Receipt Date: 20200121
  Transmission Date: 20200409
  Serious: Yes (Hospitalization, Other)
  Sender: FDA-Public Use
  Company Number: FR-MYLANLABS-2020M1004836

PATIENT
  Age: 67 Year
  Sex: Male

DRUGS (5)
  1. FLUOXETINE [Suspect]
     Active Substance: FLUOXETINE HYDROCHLORIDE
     Indication: PRODUCT USED FOR UNKNOWN INDICATION
     Dosage: 560 MILLIGRAM, TOTAL
     Route: 048
     Dates: start: 20191014, end: 20191014
  2. PERINDOPRIL [Suspect]
     Active Substance: PERINDOPRIL
     Indication: PRODUCT USED FOR UNKNOWN INDICATION
     Dosage: 70 MILLIGRAM, TOTAL
     Route: 048
     Dates: start: 20191014, end: 20191014
  3. BISOCE [Suspect]
     Active Substance: BISOPROLOL
     Indication: PRODUCT USED FOR UNKNOWN INDICATION
     Dosage: 105 MILLIGRAM, TOTAL
     Route: 048
     Dates: start: 20191014, end: 20191014
  4. BROMAZEPAM [Suspect]
     Active Substance: BROMAZEPAM
     Indication: PRODUCT USED FOR UNKNOWN INDICATION
     Dosage: 168 MILLIGRAM, TOTAL
     Route: 048
     Dates: start: 20191014, end: 20191014
  5. INSPRA [Suspect]
     Active Substance: EPLERENONE
     Indication: PRODUCT USED FOR UNKNOWN INDICATION
     Dosage: 700 MILLIGRAM, TOTAL
     Route: 048
     Dates: start: 20191014, end: 20191014

REACTIONS (6)
  - Urinary retention [Recovered/Resolved]
  - Bradycardia [Recovered/Resolved]
  - Miosis [Recovered/Resolved]
  - Pneumonia aspiration [Recovering/Resolving]
  - Poisoning deliberate [Recovered/Resolved]
  - Intentional overdose [Unknown]

NARRATIVE: CASE EVENT DATE: 20191014
